FAERS Safety Report 6031909-3 (Version None)
Quarter: 2009Q1

REPORT INFORMATION
  Report Type: 
  Country: None (occurrence: None)
  Receive Date: 20090108
  Receipt Date: 20090107
  Transmission Date: 20090719
  Serious: Yes (Hospitalization)
  Sender: FDA-Public Use
  Company Number: US-BRISTOL-MYERS SQUIBB COMPANY-14462857

PATIENT
  Age: 63 Year
  Sex: Female
  Weight: 69 kg

DRUGS (10)
  1. COUMADIN [Suspect]
     Indication: TRANSIENT ISCHAEMIC ATTACK
     Dosage: 3.5MG ONEDAY ALTERNATE WITH 4MG NEXTDAY
     Route: 048
     Dates: start: 19800101
  2. TRICOR [Suspect]
     Indication: BLOOD TRIGLYCERIDES INCREASED
     Dosage: FORMULATION: TABS
     Route: 048
     Dates: start: 20070827, end: 20070907
  3. LISINOPRIL [Concomitant]
     Indication: BLOOD PRESSURE
     Route: 048
     Dates: start: 20010101
  4. ATORVASTATIN CALCIUM [Concomitant]
     Indication: BLOOD CHOLESTEROL
     Route: 048
     Dates: start: 20030101
  5. CONJUGATED ESTROGENS [Concomitant]
     Indication: HORMONE THERAPY
     Dosage: SINCE TAKING HER 30S
     Route: 048
  6. TOPIRAMATE [Concomitant]
     Indication: HEADACHE
     Dosage: 50-150MG,50MG IN THE AM,1-2AT NIGHT,NOV2007 1-2AT NIGHT(50MG)
     Route: 048
     Dates: start: 19800101
  7. ZOLMITRIPTAN [Concomitant]
     Indication: MIGRAINE
     Route: 055
     Dates: start: 20071001
  8. LIBRAX [Concomitant]
  9. MOMETASONE FUROATE [Concomitant]
     Route: 055
  10. TYLENOL (CAPLET) [Concomitant]
     Indication: HEADACHE
     Dosage: 1DF=500MG,2-500MG TABS TWICE A DAY 2PILLS
     Route: 048

REACTIONS (5)
  - APHASIA [None]
  - CEREBRAL HAEMORRHAGE [None]
  - HEADACHE [None]
  - SINUSITIS [None]
  - SUBDURAL HAEMATOMA [None]
